FAERS Safety Report 8806937 (Version 1)
Quarter: 2012Q4

REPORT INFORMATION
  Report Type: 
  Country: US (occurrence: US)
  Receive Date: 20120925
  Receipt Date: 20120925
  Transmission Date: 20130627
  Serious: Yes (Death)
  Sender: FDA-Public Use
  Company Number: US-ROCHE-1103521

PATIENT
  Sex: Male

DRUGS (3)
  1. AVASTIN [Suspect]
     Indication: BRAIN NEOPLASM MALIGNANT
     Route: 065
  2. TEMODAR [Concomitant]
     Route: 065
     Dates: start: 20080425
  3. DECADRON [Concomitant]

REACTIONS (2)
  - Death [Fatal]
  - Amnesia [Unknown]
